FAERS Safety Report 11645088 (Version 2)
Quarter: 2017Q1

REPORT INFORMATION
  Report Type: Spontaneous
  Country: US (occurrence: US)
  Receive Date: 20151020
  Receipt Date: 20170131
  Transmission Date: 20170428
  Serious: Yes (Other)
  Sender: FDA-Public Use
  Company Number: US-SHIRE-US201512730

PATIENT
  Age: 69 Year
  Sex: Male

DRUGS (10)
  1. HUMIRA [Suspect]
     Active Substance: ADALIMUMAB
     Dosage: 40 MG, 1X/2WKS
     Route: 065
     Dates: start: 20150601, end: 2015
  2. HUMIRA [Suspect]
     Active Substance: ADALIMUMAB
     Dosage: 80 MG, ONE DOSE
     Route: 065
     Dates: start: 20150518, end: 20150518
  3. PROTONIX                           /00661201/ [Concomitant]
     Active Substance: OMEPRAZOLE
     Indication: PRODUCT USED FOR UNKNOWN INDICATION
     Dosage: 40 MG, AS REQ^D
     Route: 065
  4. IRON [Concomitant]
     Active Substance: IRON
     Indication: PRODUCT USED FOR UNKNOWN INDICATION
     Dosage: UNK, UNKNOWN
     Route: 042
  5. HUMIRA [Suspect]
     Active Substance: ADALIMUMAB
     Dosage: 40 MG, 1X/WEEK
     Route: 065
     Dates: start: 201509
  6. LIALDA [Suspect]
     Active Substance: MESALAMINE
     Dosage: UNK, 1X/DAY:QD
     Route: 048
     Dates: start: 20150713, end: 20150713
  7. PREDNISONE. [Concomitant]
     Active Substance: PREDNISONE
     Dosage: 3 DF, 1X/DAY:QD
     Route: 065
  8. PREDNISONE. [Concomitant]
     Active Substance: PREDNISONE
     Indication: PRODUCT USED FOR UNKNOWN INDICATION
     Dosage: 2 DF, 1X/DAY:QD
     Route: 065
  9. HUMIRA [Suspect]
     Active Substance: ADALIMUMAB
     Indication: COLITIS ULCERATIVE
     Dosage: 160 MG, ONE DOSE
     Route: 065
     Dates: start: 20150504, end: 20150504
  10. LIALDA [Suspect]
     Active Substance: MESALAMINE
     Indication: COLITIS ULCERATIVE
     Dosage: UNK, AS REQ^D
     Route: 048
     Dates: end: 201507

REACTIONS (26)
  - Rhinorrhoea [Unknown]
  - Dermatitis psoriasiform [Unknown]
  - Bowel movement irregularity [Unknown]
  - Skin exfoliation [Unknown]
  - Fatigue [Unknown]
  - Diarrhoea [Unknown]
  - Renal impairment [Unknown]
  - Pollakiuria [Unknown]
  - Abdominal distension [Unknown]
  - Abdominal pain [Unknown]
  - Renal function test abnormal [Unknown]
  - Haemoglobin decreased [Unknown]
  - Rash macular [Unknown]
  - Nausea [Unknown]
  - Flatulence [Unknown]
  - Auditory disorder [Unknown]
  - Blood creatinine decreased [Unknown]
  - Headache [Recovered/Resolved]
  - Colitis ulcerative [Unknown]
  - Arthralgia [Unknown]
  - Inappropriate schedule of drug administration [Recovered/Resolved]
  - Haematochezia [Recovered/Resolved]
  - Vitamin D decreased [Unknown]
  - Frequent bowel movements [Unknown]
  - Thirst [Unknown]
  - Abdominal pain upper [Unknown]

NARRATIVE: CASE EVENT DATE: 2015
